FAERS Safety Report 9002297 (Version 1)
Quarter: 2013Q1

REPORT INFORMATION
  Report Type: Spontaneous
  Country: US (occurrence: US)
  Receive Date: 20130107
  Receipt Date: 20130107
  Transmission Date: 20140127
  Serious: Yes (Death)
  Sender: FDA-Public Use
  Company Number: US-PFIZER INC-2013004421

PATIENT
  Age: 73 Year
  Sex: Male

DRUGS (1)
  1. SUTENT [Suspect]
     Indication: BLADDER CANCER
     Dosage: 25 MG, UNK

REACTIONS (3)
  - Disease progression [Fatal]
  - Bladder cancer [Fatal]
  - Off label use [Unknown]
